FAERS Safety Report 7377477-5 (Version None)
Quarter: 2011Q1

REPORT INFORMATION
  Report Type: 
  Country: None (occurrence: None)
  Receive Date: 20110316
  Receipt Date: 20110307
  Transmission Date: 20110831
  Serious: Yes (Life-Threatening, Hospitalization)
  Sender: FDA-Public Use
  Company Number: 1000019222

PATIENT
  Age: 74 Year
  Sex: Male
  Weight: 69 kg

DRUGS (4)
  1. SYMBICORT [Concomitant]
  2. BERODUAL (IPRATROPIUM, FENOTEROL) [Concomitant]
  3. IPRAMOL (IRATROPIUM, ALBUTEROL) [Concomitant]
  4. ROFLUMILAST (ROFLUMILAST) (TABLETS) [Suspect]
     Indication: CHRONIC OBSTRUCTIVE PULMONARY DISEASE
     Dosage: 500 MCG, ORAL
     Route: 048
     Dates: start: 20110215, end: 20110307

REACTIONS (2)
  - CHRONIC OBSTRUCTIVE PULMONARY DISEASE [None]
  - CONDITION AGGRAVATED [None]
